FAERS Safety Report 21204463 (Version 1)
Quarter: 2022Q3

REPORT INFORMATION
  Report Type: Spontaneous
  Country: NL (occurrence: NL)
  Receive Date: 20220812
  Receipt Date: 20220812
  Transmission Date: 20221026
  Serious: Yes (Other)
  Sender: FDA-Public Use
  Company Number: None

PATIENT
  Age: 21 Year
  Sex: Male

DRUGS (1)
  1. OXYCODONE [Suspect]
     Active Substance: OXYCODONE
     Indication: Jaw operation
     Dosage: IF NECESSARY 1 TO A MAXIMUM OF 6 PER DAY, BRAND NAME NOT SPECIFIED, UNIT DOSE AND STRENGTH : 5 MG
     Route: 065
     Dates: start: 20220718, end: 20220718

REACTIONS (1)
  - Epilepsy [Recovered/Resolved]

NARRATIVE: CASE EVENT DATE: 20220718
